FAERS Safety Report 14007027 (Version 1)
Quarter: 2017Q3

REPORT INFORMATION
  Report Type: Spontaneous
  Country: US (occurrence: None)
  Receive Date: 20170924
  Receipt Date: 20170924
  Transmission Date: 20171128
  Serious: Yes (Other)
  Sender: FDA-Public Use
  Company Number: None

PATIENT
  Age: 80 Year
  Sex: Female
  Weight: 41.73 kg

DRUGS (11)
  1. BREO ELLIPTA [Suspect]
     Active Substance: FLUTICASONE FUROATE\VILANTEROL TRIFENATATE
  2. RESTASIS [Concomitant]
     Active Substance: CYCLOSPORINE
  3. RALOXIFENE. [Concomitant]
     Active Substance: RALOXIFENE
  4. ALBUTEROL. [Concomitant]
     Active Substance: ALBUTEROL
  5. MUCINEX [Concomitant]
     Active Substance: GUAIFENESIN
  6. WARFARIN [Concomitant]
     Active Substance: WARFARIN
  7. TART CHERRY CAPS [Concomitant]
  8. BIOTIN [Concomitant]
     Active Substance: BIOTIN
  9. ACIDOPHILES [Concomitant]
  10. FUROSEMIDE. [Concomitant]
     Active Substance: FUROSEMIDE
  11. VITAMIN B12 [Concomitant]
     Active Substance: CYANOCOBALAMIN

REACTIONS (2)
  - Swelling face [None]
  - Inappropriate schedule of drug administration [None]

NARRATIVE: CASE EVENT DATE: 20160830
